FAERS Safety Report 4995323-1 (Version None)
Quarter: 2006Q2

REPORT INFORMATION
  Report Type: 
  Country: None (occurrence: None)
  Receive Date: 20060508
  Receipt Date: 20060426
  Transmission Date: 20061013
  Serious: Yes (Hospitalization)
  Sender: FDA-Public Use
  Company Number: PHEH2006US05525

PATIENT

DRUGS (2)
  1. BENAZEPRIL HYDROCHLORIDE [Suspect]
     Route: 048
  2. BENAZEPRIL HYDROCHLORIDE [Suspect]
     Route: 048

REACTIONS (1)
  - INTESTINAL OBSTRUCTION [None]
